FAERS Safety Report 15610649 (Version 1)
Quarter: 2018Q4

REPORT INFORMATION
  Report Type: Spontaneous
  Country: US (occurrence: US)
  Receive Date: 20181113
  Receipt Date: 20181113
  Transmission Date: 20190205
  Serious: No
  Sender: FDA-Public Use
  Company Number: US-ROCHE-2090754

PATIENT
  Sex: Female
  Weight: 65.38 kg

DRUGS (4)
  1. TAXOL [Suspect]
     Active Substance: PACLITAXEL
     Indication: OVARIAN CANCER
     Dosage: ONGOING: NO
     Route: 065
  2. DOXIL (UNK INGREDIENTS) [Suspect]
     Active Substance: UNSPECIFIED INGREDIENT
     Indication: OVARIAN CANCER
     Dosage: ONGOING: NO
     Route: 065
     Dates: end: 2017
  3. AVASTIN [Suspect]
     Active Substance: BEVACIZUMAB
     Indication: OVARIAN CANCER
     Dosage: BASED ON WEIGHT ;ONGOING: YES
     Route: 065
     Dates: start: 2018
  4. HERCEPTIN [Suspect]
     Active Substance: TRASTUZUMAB
     Indication: OVARIAN CANCER
     Dosage: DOSE WAS WEIGHT BASED ;ONGOING: NO
     Route: 065
     Dates: end: 2017

REACTIONS (6)
  - Buttock injury [Recovered/Resolved]
  - Off label use [Unknown]
  - Impaired healing [Recovered/Resolved]
  - Arthritis [Unknown]
  - Arthropathy [Not Recovered/Not Resolved]
  - Intentional product use issue [Unknown]
